FAERS Safety Report 24850756 (Version 2)
Quarter: 2025Q3

REPORT INFORMATION
  Report Type: Report from Study
  Country: US (occurrence: US)
  Receive Date: 20250116
  Receipt Date: 20250809
  Transmission Date: 20251020
  Serious: Yes (Hospitalization)
  Sender: ALEXION PHARMACEUTICALS
  Company Number: 2024A197460

PATIENT
  Sex: Female

DRUGS (2)
  1. OSIMERTINIB [Suspect]
     Active Substance: OSIMERTINIB
     Indication: Lung carcinoma cell type unspecified stage 0
     Dosage: 80 MILLIGRAM, QD
     Dates: start: 202310
  2. LABETALOL [Concomitant]
     Active Substance: LABETALOL
     Route: 065

REACTIONS (5)
  - Blood pressure increased [Unknown]
  - Muscle spasms [Unknown]
  - Nausea [Unknown]
  - Back pain [Unknown]
  - Muscle spasms [Unknown]
